FAERS Safety Report 13038060 (Version 1)
Quarter: 2016Q4

REPORT INFORMATION
  Report Type: Spontaneous
  Country: US (occurrence: US)
  Receive Date: 20161215
  Receipt Date: 20161215
  Transmission Date: 20170207
  Serious: No
  Sender: FDA-Public Use
  Company Number: None

PATIENT
  Age: 77 Year
  Sex: Male

DRUGS (4)
  1. GENGRAF [Suspect]
     Active Substance: CYCLOSPORINE
     Indication: RENAL TRANSPLANT
  2. GENGRAF [Suspect]
     Active Substance: CYCLOSPORINE
     Indication: HYPERLIPIDAEMIA
  3. GENGRAF [Suspect]
     Active Substance: CYCLOSPORINE
     Indication: DEMENTIA
  4. GENGRAF [Suspect]
     Active Substance: CYCLOSPORINE
     Indication: DRUG THERAPY

REACTIONS (5)
  - Tremor [None]
  - Malaise [None]
  - Condition aggravated [None]
  - Abdominal discomfort [None]
  - Cognitive disorder [None]

NARRATIVE: CASE EVENT DATE: 20161214
